FAERS Safety Report 11548792 (Version 1)
Quarter: 2015Q3

REPORT INFORMATION
  Report Type: Spontaneous
  Country: US (occurrence: US)
  Receive Date: 20150924
  Receipt Date: 20150924
  Transmission Date: 20151125
  Serious: Yes (Other)
  Sender: FDA-Public Use
  Company Number: US-INCYTE CORPORATION-2015IN002193

PATIENT
  Age: 71 Year
  Sex: Female
  Weight: 72.56 kg

DRUGS (8)
  1. JAKAFI [Suspect]
     Active Substance: RUXOLITINIB
     Indication: MYELOFIBROSIS
     Dosage: 15 MG IN THE AM, 10 MG IN THE PM
     Route: 048
     Dates: start: 20131010, end: 20150505
  2. PLAVIX [Concomitant]
     Active Substance: CLOPIDOGREL BISULFATE
  3. PROCRIT [Concomitant]
     Active Substance: ERYTHROPOIETIN
  4. CARVEDILOL. [Concomitant]
     Active Substance: CARVEDILOL
  5. ASPIRIN EC [Concomitant]
     Active Substance: ASPIRIN
  6. COUMADIN [Concomitant]
     Active Substance: WARFARIN SODIUM
  7. PROCARDIA [Concomitant]
     Active Substance: NIFEDIPINE
  8. TRILIPIX [Concomitant]
     Active Substance: FENOFIBRIC ACID

REACTIONS (1)
  - Haemoglobin decreased [Not Recovered/Not Resolved]

NARRATIVE: CASE EVENT DATE: 20150401
